FAERS Safety Report 15927644 (Version 3)
Quarter: 2019Q4

REPORT INFORMATION
  Report Type: Spontaneous
  Country: US (occurrence: US)
  Receive Date: 20190206
  Receipt Date: 20191226
  Transmission Date: 20200122
  Serious: No
  Sender: FDA-Public Use
  Company Number: US-PFIZER INC-2019056400

PATIENT
  Age: 60 Year
  Sex: Female
  Weight: 87.54 kg

DRUGS (1)
  1. CELEBREX [Suspect]
     Active Substance: CELECOXIB
     Indication: ARTHRITIS
     Dosage: 200 MG, 1X/DAY
     Route: 048
     Dates: start: 201312

REACTIONS (4)
  - Pain [Recovering/Resolving]
  - Musculoskeletal stiffness [Unknown]
  - Gait disturbance [Unknown]
  - Prescription drug used without a prescription [Not Recovered/Not Resolved]

NARRATIVE: CASE EVENT DATE: 201911
